FAERS Safety Report 12997199 (Version 2)
Quarter: 2016Q4

REPORT INFORMATION
  Report Type: Report from Study
  Country: BE (occurrence: BE)
  Receive Date: 20161205
  Receipt Date: 20161206
  Transmission Date: 20170207
  Serious: Yes (Hospitalization)
  Sender: FDA-Public Use
  Company Number: BE-BIOGEN-2016BI00325644

PATIENT
  Age: 49 Year
  Sex: Female
  Weight: 110 kg

DRUGS (6)
  1. LIORESAL [Concomitant]
     Active Substance: BACLOFEN
     Indication: BLEPHAROSPASM
     Dosage: 2 X 10 MILLIGRAMSORAL
     Route: 048
     Dates: start: 201603
  2. FOLAVIB [Concomitant]
     Indication: SUPPLEMENTATION THERAPY
     Route: 048
     Dates: start: 201510
  3. BEFACT FORTI [Concomitant]
     Indication: VITAMIN SUPPLEMENTATION
     Route: 048
     Dates: start: 201510
  4. D-CURE [Concomitant]
     Indication: SUPPLEMENTATION THERAPY
     Route: 048
     Dates: start: 201510
  5. TYSABRI [Suspect]
     Active Substance: NATALIZUMAB
     Indication: MULTIPLE SCLEROSIS
     Dosage: INFUSION OVER 1 HOUR
     Route: 042
     Dates: start: 20130422
  6. CITALOPRAM [Concomitant]
     Active Substance: CITALOPRAM HYDROBROMIDE
     Indication: DEPRESSION
     Route: 048
     Dates: start: 201510

REACTIONS (2)
  - Gait disturbance [Recovered/Resolved]
  - Back pain [Recovered/Resolved]

NARRATIVE: CASE EVENT DATE: 20161120
